FAERS Safety Report 16820540 (Version 1)
Quarter: 2019Q3

REPORT INFORMATION
  Report Type: Spontaneous
  Country: CA (occurrence: CA)
  Receive Date: 20190918
  Receipt Date: 20190918
  Transmission Date: 20191005
  Serious: Yes (Hospitalization)
  Sender: FDA-Public Use
  Company Number: CA-TEVA-2019-CA-1108851

PATIENT
  Age: 71 Year
  Sex: Male

DRUGS (11)
  1. METOPROLOL SUCCINATE. [Concomitant]
     Active Substance: METOPROLOL SUCCINATE
  2. SOTALOL. [Concomitant]
     Active Substance: SOTALOL
  3. DILTIAZEM HYDROCHLORIDE. [Interacting]
     Active Substance: DILTIAZEM HYDROCHLORIDE
     Dosage: 300 MILLIGRAM DAILY;
     Route: 065
  4. VERAPAMIL HCL [Interacting]
     Active Substance: VERAPAMIL HYDROCHLORIDE
     Indication: PRODUCT USED FOR UNKNOWN INDICATION
     Dosage: 240 MILLIGRAM DAILY;
     Route: 048
  5. ATENOLOL. [Suspect]
     Active Substance: ATENOLOL
     Indication: PRODUCT USED FOR UNKNOWN INDICATION
     Dosage: 100 MILLIGRAM DAILY;
     Route: 065
  6. CILAZAPRIL [Interacting]
     Active Substance: CILAZAPRIL ANHYDROUS
     Indication: PRODUCT USED FOR UNKNOWN INDICATION
     Route: 065
  7. DILTIAZEM HYDROCHLORIDE. [Interacting]
     Active Substance: DILTIAZEM HYDROCHLORIDE
     Indication: PRODUCT USED FOR UNKNOWN INDICATION
     Route: 065
  8. AMIODARONE [Concomitant]
     Active Substance: AMIODARONE
  9. CILAZAPRIL [Interacting]
     Active Substance: CILAZAPRIL ANHYDROUS
     Dosage: 5 MILLIGRAM DAILY;
     Route: 065
  10. ATENOLOL. [Interacting]
     Active Substance: ATENOLOL
     Route: 065
  11. DILTIAZEM HYDROCHLORIDE. [Interacting]
     Active Substance: DILTIAZEM HYDROCHLORIDE
     Dosage: 240 MILLIGRAM DAILY;
     Route: 065

REACTIONS (16)
  - Palpitations [Unknown]
  - Fatigue [Unknown]
  - Toxicity to various agents [Unknown]
  - Dyspnoea [Unknown]
  - Cardiogenic shock [Unknown]
  - Ejection fraction decreased [Unknown]
  - Heart rate abnormal [Unknown]
  - Pacemaker generated rhythm [Unknown]
  - Hypotension [Unknown]
  - Antiacetylcholine receptor antibody positive [Unknown]
  - Asthenia [Unknown]
  - Atrial fibrillation [Unknown]
  - Drug interaction [Unknown]
  - Heart rate increased [Unknown]
  - Blood potassium increased [Unknown]
  - Ventricular hypokinesia [Unknown]
